FAERS Safety Report 10053221 (Version 3)
Quarter: 2014Q3

REPORT INFORMATION
  Report Type: Spontaneous
  Country: US (occurrence: US)
  Receive Date: 20140402
  Receipt Date: 20140722
  Transmission Date: 20150326
  Serious: Yes (Hospitalization, Other)
  Sender: FDA-Public Use
  Company Number: US-MERCK-1403USA012092

PATIENT
  Sex: Male
  Weight: 93.88 kg

DRUGS (3)
  1. FOSAMAX [Suspect]
     Active Substance: ALENDRONATE SODIUM
     Dosage: 70 MG, QW
     Route: 048
     Dates: start: 20011015
  2. FOSAMAX [Suspect]
     Active Substance: ALENDRONATE SODIUM
     Indication: OSTEOPOROSIS
     Dosage: 10 MG, QD
     Route: 048
     Dates: start: 1996, end: 200110
  3. ALENDRONATE SODIUM. [Suspect]
     Active Substance: ALENDRONATE SODIUM
     Indication: OSTEOPOROSIS
     Dosage: 70 MG, QW
     Route: 048
     Dates: start: 200802, end: 201211

REACTIONS (30)
  - Weight decreased [Unknown]
  - Osteosclerosis [Unknown]
  - Anaemia postoperative [Unknown]
  - Carotid artery stenosis [Unknown]
  - Productive cough [Unknown]
  - Intramedullary rod insertion [Unknown]
  - Radius fracture [Unknown]
  - Dyspnoea [Unknown]
  - Femur fracture [Recovered/Resolved]
  - Hypertension [Unknown]
  - Glucose tolerance impaired [Unknown]
  - Gilbert^s syndrome [Unknown]
  - Body height decreased [Unknown]
  - High density lipoprotein decreased [Unknown]
  - Seborrhoeic dermatitis [Unknown]
  - Foot fracture [Unknown]
  - Erectile dysfunction [Unknown]
  - Osteoarthritis [Unknown]
  - Coronary artery disease [Unknown]
  - Psoriasis [Unknown]
  - Limb operation [Unknown]
  - Inguinal hernia repair [Unknown]
  - Vascular calcification [Unknown]
  - Blood cholesterol increased [Unknown]
  - Osteopenia [Unknown]
  - Impaired fasting glucose [Unknown]
  - Hypertriglyceridaemia [Unknown]
  - Snoring [Unknown]
  - Pharyngeal stenosis [Unknown]
  - Headache [Unknown]

NARRATIVE: CASE EVENT DATE: 1996
